FAERS Safety Report 18338265 (Version 1)
Quarter: 2020Q4

REPORT INFORMATION
  Report Type: Spontaneous
  Country: US (occurrence: US)
  Receive Date: 20201001
  Receipt Date: 20201001
  Transmission Date: 20210113
  Serious: Yes (Hospitalization)
  Sender: FDA-Public Use
  Company Number: None

PATIENT
  Age: 41 Year
  Sex: Female
  Weight: 71.28 kg

DRUGS (2)
  1. TOPIRAMATE 50MG [Suspect]
     Active Substance: TOPIRAMATE
     Indication: MIGRAINE
     Dosage: ?          QUANTITY:1 TABLET(S);?THERAPY ONGOING: Y
     Route: 048
     Dates: start: 20200909, end: 20200930
  2. ALIVE VITAMINS [Concomitant]

REACTIONS (5)
  - Abdominal pain [None]
  - Vomiting [None]
  - Rash pruritic [None]
  - Diarrhoea [None]
  - Renal scan abnormal [None]

NARRATIVE: CASE EVENT DATE: 20200916
